FAERS Safety Report 4286191-4 (Version None)
Quarter: 2004Q1

REPORT INFORMATION
  Report Type: 
  Country: None (occurrence: None)
  Receive Date: 20040115
  Receipt Date: 20030415
  Transmission Date: 20041129
  Serious: Yes (Hospitalization)
  Sender: FDA-Public Use
  Company Number: 2003151926US

PATIENT
  Age: 56 Year
  Sex: Male
  Weight: 81.6 kg

DRUGS (2)
  1. ROGAINE [Suspect]
     Indication: ALOPECIA
     Dosage: 1 ML, BID, TOPICAL
     Route: 061
     Dates: start: 19940101, end: 20030317
  2. TOPROL-XL [Concomitant]

REACTIONS (3)
  - DIZZINESS [None]
  - HEART RATE INCREASED [None]
  - HYPERTENSION [None]
